FAERS Safety Report 4319281-8 (Version None)
Quarter: 2004Q1

REPORT INFORMATION
  Report Type: 
  Country: None (occurrence: None)
  Receive Date: 20040316
  Receipt Date: 20040304
  Transmission Date: 20041129
  Serious: No
  Sender: FDA-Public Use
  Company Number: 2004CG00497

PATIENT
  Sex: Female

DRUGS (1)
  1. MOPRAL [Suspect]
     Dates: end: 20030101

REACTIONS (1)
  - CYTOLYTIC HEPATITIS [None]
